FAERS Safety Report 24732228 (Version 6)
Quarter: 2025Q3

REPORT INFORMATION
  Report Type: Spontaneous
  Country: US (occurrence: US)
  Receive Date: 20241213
  Receipt Date: 20250917
  Transmission Date: 20251021
  Serious: Yes (Other)
  Sender: BRISTOL-MYERS SQUIBB COMPANY
  Company Number: US-BRISTOL-MYERS SQUIBB COMPANY-2024-189669

PATIENT
  Age: 82 Year
  Sex: Male

DRUGS (5)
  1. LENALIDOMIDE [Suspect]
     Active Substance: LENALIDOMIDE
     Indication: Plasma cell myeloma
     Dates: start: 20241128, end: 202412
  2. LENALIDOMIDE [Suspect]
     Active Substance: LENALIDOMIDE
     Dosage: FREQUENCY: 1 PILL EVERY OTHER DAY FOR 2 WEEKS ON 1 WEEK OFF
  3. LENALIDOMIDE [Suspect]
     Active Substance: LENALIDOMIDE
     Dates: start: 202412
  4. LENALIDOMIDE [Suspect]
     Active Substance: LENALIDOMIDE
     Dosage: TAKE 1 CAPSULE BY MOUTH EVERY OTHER DAY FOR 21 DAYS THEN TAKE 7 DAYS OFF
  5. LENALIDOMIDE [Suspect]
     Active Substance: LENALIDOMIDE

REACTIONS (10)
  - Fatigue [Not Recovered/Not Resolved]
  - Asthenia [Unknown]
  - Hypersomnia [Unknown]
  - Pruritus [Not Recovered/Not Resolved]
  - Nephropathy [Not Recovered/Not Resolved]
  - Full blood count decreased [Recovering/Resolving]
  - White blood cell count decreased [Unknown]
  - Therapy interrupted [Unknown]
  - Product prescribing issue [Unknown]
  - Off label use [Unknown]
